FAERS Safety Report 18957008 (Version 1)
Quarter: 2021Q1

REPORT INFORMATION
  Report Type: Spontaneous
  Country: BR (occurrence: BR)
  Receive Date: 20210302
  Receipt Date: 20210302
  Transmission Date: 20210420
  Serious: Yes (Other)
  Sender: FDA-Public Use
  Company Number: BR-ABBVIE-21P-020-3794671-00

PATIENT
  Sex: Female

DRUGS (1)
  1. DEPAKOTE [Suspect]
     Active Substance: DIVALPROEX SODIUM
     Indication: PARTIAL SEIZURES
     Route: 048
     Dates: start: 2020

REACTIONS (2)
  - Epilepsy [Recovered/Resolved]
  - Therapeutic response unexpected [Unknown]
